FAERS Safety Report 5195824-X (Version None)
Quarter: 2006Q4

REPORT INFORMATION
  Report Type: 
  Country: None (occurrence: None)
  Receive Date: 20061227
  Receipt Date: 20061214
  Transmission Date: 20070319
  Serious: Yes (Death, Hospitalization)
  Sender: FDA-Public Use
  Company Number: AZAUS200600478

PATIENT
  Age: 69 Year
  Sex: Female
  Weight: 71.6683 kg

DRUGS (8)
  1. VIDAZA [Suspect]
     Indication: MYELODYSPLASTIC SYNDROME
     Dosage: 75 MG/M2 (DAILY X 5 DAYS), INTRAVENOUS
     Route: 042
  2. ZOLOFT [Concomitant]
  3. XANAX [Concomitant]
  4. ASCORBIC ACID [Concomitant]
  5. IRON (IRON) [Concomitant]
  6. CYANOCOBALAMIN [Concomitant]
  7. SPIRIVA [Concomitant]
  8. ALBUTEROL [Concomitant]

REACTIONS (14)
  - ASTHENIA [None]
  - BACTERIA STOOL IDENTIFIED [None]
  - BACTERIAL INFECTION [None]
  - BLOOD PRESSURE DECREASED [None]
  - CATHETER SEPSIS [None]
  - CONDITION AGGRAVATED [None]
  - HEART RATE DECREASED [None]
  - HEART RATE INCREASED [None]
  - NAUSEA [None]
  - NEUTROPHIL COUNT DECREASED [None]
  - SOMNOLENCE [None]
  - STUPOR [None]
  - VOMITING [None]
  - WHITE BLOOD CELL COUNT DECREASED [None]
